FAERS Safety Report 4877438-1 (Version None)
Quarter: 2006Q1

REPORT INFORMATION
  Report Type: 
  Country: None (occurrence: None)
  Receive Date: 20060109
  Receipt Date: 20051228
  Transmission Date: 20060701
  Serious: Yes (Hospitalization)
  Sender: FDA-Public Use
  Company Number: 200510754BFR

PATIENT
  Age: 52 Year
  Sex: Male
  Weight: 100 kg

DRUGS (9)
  1. TRASYLOL [Suspect]
     Indication: HIP ARTHROPLASTY
     Dosage: INTRAVENOUS
     Route: 042
     Dates: start: 20050623
  2. CEFAZOLIN SODIUM [Suspect]
     Dosage: INTRAVENOUS
     Route: 042
     Dates: start: 20050623
  3. DROPERIDOL [Suspect]
     Dates: start: 20050623
  4. MIDAZOLAM HCL [Suspect]
     Dosage: INTRAVENOUS
     Route: 042
     Dates: start: 20050623
  5. DIPRIVAN [Suspect]
     Indication: ANAESTHESIA
     Dosage: INTRAVENOUS
     Route: 042
     Dates: start: 20050623
  6. SUFENTANIL CITRATE [Suspect]
     Indication: ANAESTHESIA
     Dosage: INTRAVENOUS
     Route: 042
     Dates: start: 20050623
  7. MARCAINE [Suspect]
     Indication: ANAESTHESIA
     Dates: start: 20050623
  8. CLONIDINE [Suspect]
     Indication: ANAESTHESIA
  9. PARACETAMOL [Concomitant]

REACTIONS (2)
  - OEDEMA [None]
  - URTICARIA [None]
